FAERS Safety Report 4316206-6 (Version None)
Quarter: 2004Q1

REPORT INFORMATION
  Report Type: 
  Country: None (occurrence: None)
  Receive Date: 20040312
  Receipt Date: 20040213
  Transmission Date: 20041129
  Serious: Yes (Other)
  Sender: FDA-Public Use
  Company Number: ZA-GLAXOSMITHKLINE-B0323086A

PATIENT
  Age: 27 Year
  Sex: Female
  Weight: 78 kg

DRUGS (3)
  1. ZYBAN [Suspect]
     Indication: SMOKING CESSATION THERAPY
     Dosage: 150MG TWICE PER DAY
     Route: 048
     Dates: start: 20030701, end: 20030731
  2. BISOLVIN LINCTUS [Concomitant]
     Route: 048
     Dates: start: 20030620, end: 20030705
  3. KLACID XL [Concomitant]
     Route: 048
     Dates: start: 20030630, end: 20030705

REACTIONS (4)
  - ABORTION SPONTANEOUS [None]
  - COMPLICATIONS OF MATERNAL EXPOSURE TO THERAPEUTIC DRUGS [None]
  - MATERNAL DRUGS AFFECTING FOETUS [None]
  - PREGNANCY [None]
